FAERS Safety Report 9425210 (Version 2)
Quarter: 2013Q3

REPORT INFORMATION
  Report Type: Spontaneous
  Country: US (occurrence: US)
  Receive Date: 20130729
  Receipt Date: 20130814
  Transmission Date: 20140515
  Serious: Yes (Hospitalization, Other)
  Sender: FDA-Public Use
  Company Number: US-PFIZER INC-2013218780

PATIENT
  Age: 57 Year
  Sex: Female
  Weight: 77.11 kg

DRUGS (27)
  1. INLYTA [Suspect]
     Indication: RENAL CANCER
     Dosage: 5 MG, 2X/DAY
     Route: 048
     Dates: start: 20120307
  2. BUPROPION SR 12HR [Concomitant]
     Dosage: SR 12 HR, 150 MG, EVERY OTHER DAY FOR 1 WEEK, THEN IF TOLERATED ICREASE TO DAILY
  3. HYDROCODONE W/ACETAMINOPHEN [Concomitant]
     Indication: PAIN
     Dosage: (7.5-325 MG, TAKE 1-2 TABS EVERY 4 HOURS)
     Route: 048
  4. CELEXA [Concomitant]
     Dosage: UNK
  5. IBUPROFEN [Concomitant]
     Dosage: UNK
  6. FERROUS SULFATE [Concomitant]
     Dosage: UNK
  7. LORTAB [Concomitant]
     Dosage: UNK
  8. FEXOFENADINE HYDROCHLORIDE [Concomitant]
     Dosage: UNK
  9. NEURONTIN [Concomitant]
     Dosage: UNK
  10. NYSTATIN [Concomitant]
     Dosage: UNK
  11. CITALOPRAM HYDROBROMIDE [Concomitant]
     Dosage: 40 MG, 1X/DAY (TAKE 1 TABLET)
     Route: 048
  12. DAPTOMYCIN [Concomitant]
     Dosage: 300 MG, 1X/DAY (EVERY 24 HOURS)
     Route: 042
  13. DIPHENHYDRAMINE [Concomitant]
     Indication: INSOMNIA
     Dosage: 50 MG, AS NEEDED (TAKE 1 CAP NIGHTLY)
     Route: 048
  14. ENOXAPARIN [Concomitant]
     Dosage: 40 MG, 1X/DAY (40 MG/0.4ML, INJECT 40 MG)
     Route: 058
  15. FAMOTIDINE [Concomitant]
     Dosage: 20 MG, 1X/DAY (TAKE 1 TAB)
     Route: 048
  16. GABAPENTIN [Concomitant]
     Dosage: 300 MG, 2X/DAY (TAKE ONE CAPSULE)
  17. LEVOTHYROXINE SODIUM [Concomitant]
     Dosage: 50 UG, 1X/DAY (TAKE 1 TAB)
     Route: 048
  18. MORPHINE [Concomitant]
     Dosage: 1 ML, SOLUTION (5 MG/ML; 1 ML EVERY 6 HOURS AS NEEDED)
     Route: 042
  19. POLYETHYLENE GLYCOL [Concomitant]
     Indication: CONSTIPATION
     Dosage: 17 G, PACK (ONCE DAILY AS NEEDED)
     Route: 048
  20. PROCHLORPERAZINE [Concomitant]
     Indication: NAUSEA
     Dosage: 10 MG, (TAKE 1 TABLET EVERY 6 HOURS AS NEEDED)
     Route: 048
  21. PROCHLORPERAZINE [Concomitant]
     Indication: VOMITING
  22. SODIUM CHLORIDE [Concomitant]
     Dosage: 0.9 %, SOLUTION (1-10 ML BY INTRACATHETER ROUTE EVERY 8 HOURS AS NEEDED )
  23. SODIUM CHLORIDE [Concomitant]
     Dosage: 0.9 %, SOLUTION AS NEEDED (10-40 ML BY INTRACATHETER ROUTE EVERY 8 HOURS)
  24. SODIUM CHLORIDE [Concomitant]
     Dosage: 0.9 %, SOLUTION AS NEEDED (10-80 ML BY INTRACATHETER ROUTE)
  25. TIZANIDINE [Concomitant]
     Indication: MUSCLE SPASTICITY
     Dosage: 4 MG, (TAKE 1 TAB EVERY 8 HOURS AS NEEDED)
     Route: 048
  26. TIZANIDINE [Concomitant]
     Indication: MUSCLE SPASMS
  27. ZOLPIDEM [Concomitant]
     Indication: INSOMNIA
     Dosage: 5 MG, AS NEEDED (TAKE 1 TAB NIGHTLY)
     Route: 048

REACTIONS (25)
  - Staphylococcal infection [Unknown]
  - Blood count abnormal [Unknown]
  - Renal failure chronic [Unknown]
  - Hip fracture [Unknown]
  - Osteomyelitis [Unknown]
  - Joint fluid drainage [Unknown]
  - Osteomyelitis [Unknown]
  - Joint abscess [Unknown]
  - Arthralgia [Unknown]
  - Hypercalcaemia [Unknown]
  - Anaemia [Unknown]
  - Hypothyroidism [Unknown]
  - Hyponatraemia [Recovered/Resolved]
  - Malnutrition [Unknown]
  - Blood thyroid stimulating hormone increased [Unknown]
  - Limb discomfort [Unknown]
  - Wound [Unknown]
  - Nausea [Unknown]
  - Vomiting [Unknown]
  - Diarrhoea [Unknown]
  - Cough [Unknown]
  - Chest pain [Unknown]
  - Muscle atrophy [Unknown]
  - Disease progression [Unknown]
  - Renal cancer [Unknown]
